FAERS Safety Report 11105234 (Version 1)
Quarter: 2015Q2

REPORT INFORMATION
  Report Type: Spontaneous
  Country: US (occurrence: US)
  Receive Date: 20150511
  Receipt Date: 20150511
  Transmission Date: 20150821
  Serious: No
  Sender: FDA-Public Use
  Company Number: US-009507513-1505USA001914

PATIENT
  Age: 73 Year
  Sex: Female

DRUGS (5)
  1. DULERA [Suspect]
     Active Substance: FORMOTEROL FUMARATE DIHYDRATE\MOMETASONE FUROATE
     Indication: ASTHMA
     Dosage: TEN PUFFS A DAY
     Route: 055
     Dates: start: 20150425
  2. SULFASALAZINE. [Concomitant]
     Active Substance: SULFASALAZINE
  3. CYMBALTA [Concomitant]
     Active Substance: DULOXETINE HYDROCHLORIDE
  4. CYCLOBENZAPRINE HYDROCHLORIDE. [Concomitant]
     Active Substance: CYCLOBENZAPRINE HYDROCHLORIDE
  5. VITAMIN D [Concomitant]
     Active Substance: CHOLECALCIFEROL

REACTIONS (13)
  - Nausea [Unknown]
  - Head injury [Unknown]
  - Oral pain [Unknown]
  - Oropharyngeal pain [Unknown]
  - Overdose [Unknown]
  - Vomiting [Unknown]
  - Dry throat [Unknown]
  - Fall [Unknown]
  - Tinnitus [Unknown]
  - Lethargy [Unknown]
  - Contusion [Unknown]
  - Dry mouth [Unknown]
  - Dizziness [Unknown]

NARRATIVE: CASE EVENT DATE: 201504
